FAERS Safety Report 21951128 (Version 6)
Quarter: 2023Q2

REPORT INFORMATION
  Report Type: Report from Study
  Country: US (occurrence: US)
  Receive Date: 20230203
  Receipt Date: 20230505
  Transmission Date: 20230722
  Serious: Yes (Death, Hospitalization, Other)
  Sender: FDA-Public Use
  Company Number: US-002147023-NVSC2023US021274

PATIENT
  Age: 66 Year
  Sex: Female
  Weight: 60.2 kg

DRUGS (30)
  1. FLUDARABINE PHOSPHATE [Suspect]
     Active Substance: FLUDARABINE PHOSPHATE
     Indication: Ovarian cancer stage III
     Dosage: 40 MG, QD
     Route: 042
     Dates: start: 20220927, end: 20220929
  2. CYCLOPHOSPHAMIDE [Suspect]
     Active Substance: CYCLOPHOSPHAMIDE
     Indication: Ovarian cancer stage III
     Dosage: 3800 MG, QD
     Route: 042
     Dates: start: 20220927, end: 20220928
  3. METOPROLOL SUCCINATE [Concomitant]
     Active Substance: METOPROLOL SUCCINATE
     Indication: Product used for unknown indication
     Dosage: 1 DOSAGE FORM, QD (FORMULATION: EXTENDED RELEASE TABLET)
     Route: 048
     Dates: end: 20221218
  4. FLUOCINONIDE [Concomitant]
     Active Substance: FLUOCINONIDE
     Indication: Rash
     Dosage: UNK, BID  (APPLY TOPICALLY TO AFFECTED AREA 2 TIMES A DAY TO AFFECTED AREAS FOR 2-3 WEEKS)
     Route: 061
     Dates: end: 20221212
  5. FLUOCINONIDE [Concomitant]
     Active Substance: FLUOCINONIDE
     Dosage: UNK, BID  (APPLY TOPICALLY TO AFFECTED AREA 2 TIMES A DAY TO AFFECTED AREAS FOR 2-3 WEEKS)
     Route: 061
     Dates: start: 20221227
  6. ZARXIO [Concomitant]
     Active Substance: FILGRASTIM-SNDZ
     Indication: Product used for unknown indication
     Dosage: 480 MG, QD (WOULD HOLD OFF ON HOME ADMINISTRATION FOR NOW. WOULD GET GCSF IN CLINIC UNLESS  ANC GREA
     Route: 058
     Dates: end: 202210
  7. TESSALON [Concomitant]
     Active Substance: BENZONATATE
     Indication: Cough
     Dosage: 1 DOSAGE FORM, TID (AS NEEDED FOR COUGH)
     Route: 048
     Dates: end: 20221219
  8. TESSALON [Concomitant]
     Active Substance: BENZONATATE
     Dosage: 1 DOSAGE FORM, TID (100 MG, AS NEEDED FOR COUGH)
     Route: 048
     Dates: start: 20221227
  9. PEPCID [Concomitant]
     Active Substance: FAMOTIDINE
     Indication: Dyspepsia
     Dosage: 1 DOSAGE FORM, BID (AS NEEDED FOR INDIGESTION)
     Route: 048
     Dates: end: 202210
  10. PEPCID [Concomitant]
     Active Substance: FAMOTIDINE
     Dosage: 1 DOSAGE FORM, BID (AS NEEDED FOR INDIGESTION)
     Route: 048
     Dates: start: 20221227
  11. ACETAMINOPHEN [Concomitant]
     Active Substance: ACETAMINOPHEN
     Indication: Pain
     Dosage: 650 MG, QID (2 TAB) (Q4H) (AS NEEDED FOR PAIN)
     Route: 048
     Dates: end: 202211
  12. ACETAMINOPHEN [Concomitant]
     Active Substance: ACETAMINOPHEN
     Dosage: 650 MG, QID, 2 TAB (Q4H) (AS NEEDED FOR PAIN)
     Route: 048
     Dates: start: 20221227
  13. CARVEDILOL [Concomitant]
     Active Substance: CARVEDILOL
     Indication: Palpitations
     Dosage: 1 DOSAGE FORM, BID
     Route: 048
     Dates: start: 20221227
  14. FUROSEMIDE [Concomitant]
     Active Substance: FUROSEMIDE
     Indication: Product used for unknown indication
     Dosage: 1 DOSAGE FORM, QD
     Route: 048
  15. PACLITAXEL [Concomitant]
     Active Substance: PACLITAXEL
     Indication: Product used for unknown indication
     Dosage: UNK
     Route: 065
     Dates: start: 202011, end: 202101
  16. PACLITAXEL [Concomitant]
     Active Substance: PACLITAXEL
     Dosage: UNK
     Route: 065
  17. CARBOPLATIN [Concomitant]
     Active Substance: CARBOPLATIN
     Indication: Product used for unknown indication
     Dosage: UNK
     Route: 065
     Dates: start: 202011, end: 202101
  18. CARBOPLATIN [Concomitant]
     Active Substance: CARBOPLATIN
     Dosage: UNK
     Route: 065
  19. SODIUM CHLORIDE [Concomitant]
     Active Substance: SODIUM CHLORIDE
     Indication: Product used for unknown indication
     Dosage: 500 CC BOLUS
     Route: 065
  20. METHYLPREDNISOLONE [Concomitant]
     Active Substance: METHYLPREDNISOLONE
     Indication: Product used for unknown indication
     Dosage: 2 DOSAGE FORM, Q4H (2 DOSES 4 HOURS APART)
     Route: 042
     Dates: start: 20221219
  21. METHYLPREDNISOLONE [Concomitant]
     Active Substance: METHYLPREDNISOLONE
     Dosage: 60 MG, QD
     Route: 042
  22. METHYLPREDNISOLONE [Concomitant]
     Active Substance: METHYLPREDNISOLONE
     Indication: Dyspnoea exertional
     Dosage: 4 MG (TAKE 5 TABLETS BY MOUTH TWICE A DAY FOR 2 DAYS; THEN TAKE 2.5 TABLETS BY MOUTH TWICE A DAY FOR
     Route: 048
     Dates: start: 20221227, end: 20230103
  23. CYCLOBENZAPRINE [Concomitant]
     Active Substance: CYCLOBENZAPRINE
     Indication: Muscle spasms
     Dosage: 10 MG, TID (1 TAB(S) ORALLY 3 TIMES A DAY AS NEEDED)
     Route: 048
     Dates: start: 20221227
  24. COREG [Concomitant]
     Active Substance: CARVEDILOL
     Indication: Product used for unknown indication
     Dosage: UNK
     Route: 065
  25. GEMCITABINE [Concomitant]
     Active Substance: GEMCITABINE
     Indication: Product used for unknown indication
     Dosage: UNK
     Route: 065
  26. AVASTIN [Concomitant]
     Active Substance: BEVACIZUMAB
     Indication: Product used for unknown indication
     Dosage: UNK
     Route: 065
  27. COLACE [Concomitant]
     Active Substance: DOCUSATE SODIUM
     Indication: Product used for unknown indication
     Dosage: 1 DOSAGE FORM, BID (PRN)
     Route: 048
  28. MAALOX ANTACID [Concomitant]
     Active Substance: ALUMINUM HYDROXIDE\DIMETHICONE\MAGNESIUM HYDROXIDE
     Indication: Product used for unknown indication
     Dosage: 30 ML, Q4H (PRN) (THERAPEUTIC EQUIVALENT)
     Route: 048
  29. MELATONIN [Concomitant]
     Active Substance: MELATONIN
     Indication: Product used for unknown indication
     Dosage: 3 MG, QHS (PRN) (1 TAB)
     Route: 048
  30. ZOFRAN [Concomitant]
     Active Substance: ONDANSETRON HYDROCHLORIDE
     Indication: Product used for unknown indication
     Dosage: 4 MG (=2 ML), Q6H (PRN)
     Route: 042

REACTIONS (30)
  - Cardiac failure [Fatal]
  - Chest pain [Unknown]
  - Respiratory failure [Unknown]
  - Dyspnoea [Unknown]
  - Chronic kidney disease [Unknown]
  - Hypoxia [Unknown]
  - Pneumonitis [Unknown]
  - Deep vein thrombosis [Unknown]
  - Acute kidney injury [Unknown]
  - Ascites [Unknown]
  - Pulmonary hypertension [Unknown]
  - Acute respiratory distress syndrome [Unknown]
  - Nephrotic syndrome [Unknown]
  - Pulmonary oedema [Unknown]
  - Tachycardia [Unknown]
  - Atelectasis [Unknown]
  - Pleural effusion [Unknown]
  - Oedema peripheral [Unknown]
  - Fall [Unknown]
  - Dizziness [Unknown]
  - Hypotension [Unknown]
  - Pulmonary septal thickening [Unknown]
  - Hypervolaemia [Unknown]
  - Generalised oedema [Unknown]
  - Hypoalbuminaemia [Unknown]
  - Dyspnoea exertional [Unknown]
  - Petechiae [Unknown]
  - Lichenoid keratosis [Unknown]
  - Dermatitis [Unknown]
  - Hyperkeratosis [Unknown]

NARRATIVE: CASE EVENT DATE: 20221001
